FAERS Safety Report 9801236 (Version 2)
Quarter: 2014Q1

REPORT INFORMATION
  Report Type: Spontaneous
  Country: US (occurrence: US)
  Receive Date: 20140107
  Receipt Date: 20140122
  Transmission Date: 20141002
  Serious: Yes (Death, Other)
  Sender: FDA-Public Use
  Company Number: US-B.I. PHARMACEUTICALS,INC./RIDGEFIELD-2014-BI-00329BP

PATIENT
  Age: 85 Year
  Sex: Female

DRUGS (4)
  1. PERSANTIN [Suspect]
     Indication: CEREBROVASCULAR ACCIDENT PROPHYLAXIS
     Route: 048
  2. TYLENOL [Concomitant]
     Indication: PAIN
  3. ASPIRIN [Concomitant]
     Indication: PAIN
  4. MEDICATIONS FOR HIGH BLOOD PRESSURE [Concomitant]
     Indication: HYPERTENSION

REACTIONS (1)
  - Transient ischaemic attack [Fatal]
